FAERS Safety Report 24047799 (Version 4)
Quarter: 2024Q3

REPORT INFORMATION
  Report Type: Report from Study
  Country: US (occurrence: US)
  Receive Date: 20240703
  Receipt Date: 20240920
  Transmission Date: 20241017
  Serious: Yes (Other)
  Sender: MALLINCKRODT
  Company Number: US-MALLINCKRODT-MNK202401471

PATIENT
  Age: 59 Year
  Sex: Female

DRUGS (13)
  1. CORTICOTROPIN [Suspect]
     Active Substance: CORTICOTROPIN
     Indication: Iridocyclitis
     Route: 058
     Dates: start: 20240401, end: 202404
  2. CORTICOTROPIN [Suspect]
     Active Substance: CORTICOTROPIN
     Indication: Uveitis
     Dosage: 80 UNITS
     Dates: start: 202308
  3. CORTICOTROPIN [Suspect]
     Active Substance: CORTICOTROPIN
     Dates: start: 2024
  4. JARDIANCE [Suspect]
     Active Substance: EMPAGLIFLOZIN
     Indication: Blood glucose increased
     Dosage: UNK
  5. PREDNISONE [Suspect]
     Active Substance: PREDNISONE
     Indication: Sinusitis
  6. MYCOPHENOLIC ACID [Concomitant]
     Active Substance: MYCOPHENOLIC ACID
  7. TORADOL [Concomitant]
     Active Substance: KETOROLAC TROMETHAMINE
     Indication: Pain
     Dosage: UNKNOWN
  8. BROMFENAC [Concomitant]
     Active Substance: BROMFENAC
     Indication: Pain
     Dosage: UNKNOWN
  9. HUMIRA [Concomitant]
     Active Substance: ADALIMUMAB
     Dosage: UNKNOWN
  10. TYLENOL [Concomitant]
     Active Substance: ACETAMINOPHEN
     Indication: Pain
     Dosage: UNKNOWN
  11. ALEVE [Concomitant]
     Active Substance: NAPROXEN SODIUM
     Indication: Pain
     Dosage: UNKNOWN
  12. FLAXSEED [Concomitant]
     Active Substance: FLAX SEED
     Dosage: UNKNOWN
  13. BETADINE [Concomitant]
     Active Substance: POVIDONE-IODINE
     Dosage: UNKNOWN

REACTIONS (7)
  - Diabetes mellitus [Not Recovered/Not Resolved]
  - Uveitis [Not Recovered/Not Resolved]
  - Illness [Unknown]
  - Night sweats [Not Recovered/Not Resolved]
  - Heart rate increased [Unknown]
  - Blood glucose decreased [Unknown]
  - Insomnia [Not Recovered/Not Resolved]

NARRATIVE: CASE EVENT DATE: 20240101
